FAERS Safety Report 10048206 (Version 3)
Quarter: 2014Q2

REPORT INFORMATION
  Report Type: Report from Study
  Country: US (occurrence: US)
  Receive Date: 20140331
  Receipt Date: 20140519
  Transmission Date: 20141212
  Serious: Yes (Death, Hospitalization)
  Sender: FDA-Public Use
  Company Number: US-ACTELION-A-US2014-96396

PATIENT
  Age: 47 Year
  Sex: Male

DRUGS (2)
  1. TRACLEER [Suspect]
     Indication: PULMONARY ARTERIAL HYPERTENSION
     Dosage: UNK
     Route: 048
     Dates: end: 20140401
  2. SILDENAFIL [Concomitant]

REACTIONS (4)
  - Respiratory failure [Fatal]
  - Cellulitis [Not Recovered/Not Resolved]
  - Pyrexia [Not Recovered/Not Resolved]
  - Pain in extremity [Not Recovered/Not Resolved]
